FAERS Safety Report 7782354-1 (Version None)
Quarter: 2011Q3

REPORT INFORMATION
  Report Type: 
  Country: None (occurrence: None)
  Receive Date: 20110927
  Receipt Date: 20110727
  Transmission Date: 20111222
  Serious: No
  Sender: FDA-Public Use
  Company Number: US-ALLERGAN-1110143US

PATIENT
  Age: 42 Year
  Sex: Female

DRUGS (5)
  1. ELIMITE [Suspect]
     Indication: ACARODERMATITIS
     Dosage: 1 DF, SINGLE
     Route: 061
     Dates: start: 20110719
  2. ELIMITE [Suspect]
     Dosage: 1 DF, SINGLE
     Route: 061
     Dates: start: 20110725
  3. CLARITIN [Concomitant]
     Indication: MULTIPLE ALLERGIES
     Dosage: 1 DF, QD
     Route: 048
  4. MULTIVITAMIN                       /00097801/ [Concomitant]
  5. CALCIUM CARBONATE [Concomitant]

REACTIONS (10)
  - ANXIETY [None]
  - SALIVA ALTERED [None]
  - HEADACHE [None]
  - CHEST DISCOMFORT [None]
  - NAUSEA [None]
  - OVERDOSE [None]
  - THROAT TIGHTNESS [None]
  - DRY THROAT [None]
  - DIZZINESS [None]
  - FEELING JITTERY [None]
